FAERS Safety Report 16831282 (Version 1)
Quarter: 2019Q3

REPORT INFORMATION
  Report Type: Spontaneous
  Country: JP (occurrence: JP)
  Receive Date: 20190920
  Receipt Date: 20190920
  Transmission Date: 20191005
  Serious: Yes (Death, Hospitalization)
  Sender: FDA-Public Use
  Company Number: JP-ACTELION-A-CH2019-195680

PATIENT
  Age: 44 Year
  Sex: Female

DRUGS (3)
  1. TRACLEER [Suspect]
     Active Substance: BOSENTAN
     Indication: PULMONARY ARTERIAL HYPERTENSION
     Route: 048
  2. TADALAFIL. [Concomitant]
     Active Substance: TADALAFIL
     Route: 048
  3. OXYGEN. [Concomitant]
     Active Substance: OXYGEN

REACTIONS (16)
  - Dehydration [Unknown]
  - Decreased appetite [Unknown]
  - Vomiting [Unknown]
  - Low cardiac output syndrome [Unknown]
  - Abdominal distension [Unknown]
  - Weight increased [Unknown]
  - Nausea [Unknown]
  - Tricuspid valve incompetence [Unknown]
  - Death [Fatal]
  - Right ventricular failure [Unknown]
  - Asthenia [Unknown]
  - Hepatorenal failure [Unknown]
  - Fluid overload [Unknown]
  - Oedema peripheral [Unknown]
  - Pulmonary valve incompetence [Unknown]
  - Urine output decreased [Unknown]
